FAERS Safety Report 20695316 (Version 4)
Quarter: 2022Q3

REPORT INFORMATION
  Report Type: Spontaneous
  Country: US (occurrence: US)
  Receive Date: 20220411
  Receipt Date: 20220818
  Transmission Date: 20221026
  Serious: Yes (Hospitalization)
  Sender: FDA-Public Use
  Company Number: US-PFIZER INC-202200488887

PATIENT
  Age: 55 Year
  Sex: Male
  Weight: 72 kg

DRUGS (3)
  1. KETAMINE HYDROCHLORIDE [Suspect]
     Active Substance: KETAMINE HYDROCHLORIDE
     Dosage: UNK
  2. QUETIAPINE [Suspect]
     Active Substance: QUETIAPINE
     Dosage: 25 MG, 2X/DAY
     Route: 048
  3. OLANZAPINE [Suspect]
     Active Substance: OLANZAPINE
     Dosage: 2.5 MG, 2X/DAY
     Route: 048

REACTIONS (3)
  - Paradoxical drug reaction [Unknown]
  - Aggression [Unknown]
  - Akathisia [Unknown]
